FAERS Safety Report 4416345-5 (Version None)
Quarter: 2004Q3

REPORT INFORMATION
  Report Type: 
  Country: None (occurrence: None)
  Receive Date: 20040805
  Receipt Date: 20040721
  Transmission Date: 20050211
  Serious: Yes (Hospitalization)
  Sender: FDA-Public Use
  Company Number: AU-ROCHE-375572

PATIENT
  Age: 50 Year
  Sex: Male

DRUGS (6)
  1. INTERFERON ALFA-2A [Suspect]
     Route: 058
     Dates: start: 20040713, end: 20040720
  2. INTERFERON ALFA-2A [Suspect]
     Route: 058
  3. BLINDED BEVACIZUMAB [Suspect]
     Route: 042
     Dates: start: 20040713
  4. ACETAMINOPHEN [Concomitant]
     Dates: start: 20040629
  5. MS CONTIN [Concomitant]
     Dates: start: 20040629
  6. MORPHINE [Concomitant]
     Dates: start: 20040629

REACTIONS (10)
  - ARTHRALGIA [None]
  - CHILLS [None]
  - DEHYDRATION [None]
  - EPISTAXIS [None]
  - HYPERHIDROSIS [None]
  - MALAISE [None]
  - MYALGIA [None]
  - NAUSEA [None]
  - PAIN [None]
  - VOMITING [None]
